FAERS Safety Report 5445682-0 (Version None)
Quarter: 2007Q3

REPORT INFORMATION
  Report Type: 
  Country: None (occurrence: None)
  Receive Date: 20070904
  Receipt Date: 20070822
  Transmission Date: 20080115
  Serious: Yes (Other)
  Sender: FDA-Public Use
  Company Number: 2007325651

PATIENT
  Age: 7 Year
  Sex: Male

DRUGS (1)
  1. LISTERINE AGENT COOL BLUE BUBBLE BLAST (NO ACTIVE INGREDIENT) [Suspect]
     Indication: DENTAL PLAQUE
     Dosage: AS DIRECTED, ORAL
     Route: 048
     Dates: start: 20060101, end: 20070101

REACTIONS (5)
  - ABDOMINAL PAIN UPPER [None]
  - ANOREXIA [None]
  - EATING DISORDER [None]
  - MALAISE [None]
  - WEIGHT DECREASED [None]
